FAERS Safety Report 5318006-7 (Version None)
Quarter: 2007Q2

REPORT INFORMATION
  Report Type: 
  Country: None (occurrence: None)
  Receive Date: 20070504
  Receipt Date: 20070504
  Transmission Date: 20071010
  Serious: Yes (Hospitalization)
  Sender: FDA-Public Use
  Company Number: None

PATIENT
  Age: 87 Year
  Sex: Male
  Weight: 72.5755 kg

DRUGS (1)
  1. ASPIRIN [Suspect]
     Dosage: 81 MG DAILY PO
     Route: 048
     Dates: start: 20050101

REACTIONS (1)
  - HAEMATURIA [None]
